FAERS Safety Report 8127095-6 (Version None)
Quarter: 2012Q1

REPORT INFORMATION
  Report Type: 
  Country: None (occurrence: None)
  Receive Date: 20120210
  Receipt Date: 20120206
  Transmission Date: 20120608
  Serious: Yes (Hospitalization, Other)
  Sender: FDA-Public Use
  Company Number: AU-US-EMD SERONO, INC.-7108665

PATIENT
  Age: 7 Decade
  Sex: Female

DRUGS (1)
  1. REBIF [Suspect]
     Indication: RELAPSING-REMITTING MULTIPLE SCLEROSIS

REACTIONS (4)
  - CANDIDIASIS [None]
  - INJECTION SITE INFECTION [None]
  - DERMAL CYST [None]
  - INJECTION SITE CELLULITIS [None]
